FAERS Safety Report 15709931 (Version 1)
Quarter: 2018Q4

REPORT INFORMATION
  Report Type: Spontaneous
  Country: IT (occurrence: IT)
  Receive Date: 20181211
  Receipt Date: 20181211
  Transmission Date: 20190205
  Serious: Yes (Other)
  Sender: FDA-Public Use
  Company Number: IT-ALLERGAN-1856680US

PATIENT
  Age: 15 Year
  Sex: Female
  Weight: 66 kg

DRUGS (1)
  1. MORPHINE SULFATE UNK [Suspect]
     Active Substance: MORPHINE SULFATE
     Indication: PRODUCT USED FOR UNKNOWN INDICATION
     Route: 065

REACTIONS (4)
  - Pancreatitis acute [Unknown]
  - Sphincter of Oddi dysfunction [Unknown]
  - Off label use [Unknown]
  - Cholelithiasis [Unknown]
